FAERS Safety Report 15320107 (Version 2)
Quarter: 2018Q3

REPORT INFORMATION
  Report Type: Spontaneous
  Country: US (occurrence: US)
  Receive Date: 20180827
  Receipt Date: 20180925
  Transmission Date: 20181010
  Serious: No
  Sender: FDA-Public Use
  Company Number: US-PFIZER INC-2018339989

PATIENT
  Age: 7 Year
  Sex: Female
  Weight: 53.3 kg

DRUGS (1)
  1. LEVOTHYROXINE SODIUM. [Suspect]
     Active Substance: LEVOTHYROXINE SODIUM
     Dosage: UNK

REACTIONS (3)
  - Drug intolerance [Unknown]
  - Fatigue [Recovering/Resolving]
  - Weight increased [Recovering/Resolving]
